FAERS Safety Report 12329070 (Version 2)
Quarter: 2016Q2

REPORT INFORMATION
  Report Type: Report from Study
  Country: US (occurrence: US)
  Receive Date: 20160503
  Receipt Date: 20160510
  Transmission Date: 20160815
  Serious: Yes (Other)
  Sender: FDA-Public Use
  Company Number: US-VERTEX PHARMACEUTICALS-2015-003453

PATIENT
  Age: 21 Year
  Sex: Female

DRUGS (1)
  1. ORKAMBI [Suspect]
     Active Substance: IVACAFTOR\LUMACAFTOR
     Indication: CYSTIC FIBROSIS
     Dosage: UNK
     Route: 048
     Dates: start: 20150818, end: 20150916

REACTIONS (7)
  - Aspartate aminotransferase increased [Recovered/Resolved]
  - Pyrexia [Recovering/Resolving]
  - Chest discomfort [Recovering/Resolving]
  - Alanine aminotransferase increased [Recovered/Resolved]
  - Rash [Unknown]
  - Nausea [Unknown]
  - Blood bilirubin increased [Recovered/Resolved]

NARRATIVE: CASE EVENT DATE: 20150818
